FAERS Safety Report 8383159-3 (Version None)
Quarter: 2012Q2

REPORT INFORMATION
  Report Type: 
  Country: None (occurrence: None)
  Receive Date: 20120524
  Receipt Date: 20120516
  Transmission Date: 20120825
  Serious: Yes (Hospitalization)
  Sender: FDA-Public Use
  Company Number: DE-ASTELLAS-2012US004847

PATIENT
  Sex: Male
  Weight: 65 kg

DRUGS (1)
  1. ERLOTINIB HYDROCHLORIDE [Suspect]
     Indication: BRONCHIAL CARCINOMA
     Dosage: 75 MG, UNKNOWN/D
     Route: 048
     Dates: start: 20111201, end: 20120401

REACTIONS (1)
  - THROMBOSIS [None]
